FAERS Safety Report 4672750-3 (Version None)
Quarter: 2005Q2

REPORT INFORMATION
  Report Type: 
  Country: None (occurrence: None)
  Receive Date: 20050523
  Receipt Date: 20050509
  Transmission Date: 20051028
  Serious: Yes (Other)
  Sender: FDA-Public Use
  Company Number: 2005029018

PATIENT
  Age: 76 Year
  Sex: Female
  Weight: 64 kg

DRUGS (5)
  1. SOMAVERT [Suspect]
     Indication: ACROMEGALY
     Dosage: (10  MG, DAILY), SUBCUTANEOUS
     Route: 058
     Dates: start: 20040708, end: 20041123
  2. ZESTORETIC [Concomitant]
  3. SECTRAL [Concomitant]
  4. PRAVASTATIN [Concomitant]
  5. LEXOMIL (BROMAZEPAM) [Concomitant]

REACTIONS (9)
  - BRAIN NEOPLASM [None]
  - DELUSION [None]
  - DISEASE RECURRENCE [None]
  - HYPERTENSION [None]
  - MALAISE [None]
  - MENTAL DISORDER [None]
  - NAUSEA [None]
  - PANIC ATTACK [None]
  - TREMOR [None]
